FAERS Safety Report 19763859 (Version 2)
Quarter: 2021Q3

REPORT INFORMATION
  Report Type: Spontaneous
  Country: FI (occurrence: FI)
  Receive Date: 20210830
  Receipt Date: 20210908
  Transmission Date: 20211014
  Serious: Yes (Other)
  Sender: FDA-Public Use
  Company Number: FI-IGSA-BIG0015779

PATIENT
  Age: 68 Year
  Sex: Female
  Weight: 45 kg

DRUGS (11)
  1. SOMAC [Concomitant]
     Active Substance: PANTOPRAZOLE SODIUM
     Dosage: 40 MILLIGRAM, QD
     Route: 048
  2. PROGYNOVA [ESTRADIOL] [Concomitant]
     Dosage: 0.5 MILLIGRAM, QD
     Route: 048
  3. BURANA [Concomitant]
     Active Substance: IBUPROFEN
     Dosage: 600 MILLIGRAM  (1?4 TIME DAILY), PRN
     Route: 048
  4. TENOX [TEMAZEPAM] [Concomitant]
     Dosage: 20 MILLIGRAM
  5. GAMUNEX [Suspect]
     Active Substance: HUMAN IMMUNOGLOBULIN G
     Indication: HYPOGAMMAGLOBULINAEMIA
     Dosage: 20 GRAM, Q.3WK.
     Route: 042
     Dates: start: 20210525, end: 20210525
  6. VAGIFEM [Concomitant]
     Active Substance: ESTRADIOL
     Dosage: 10 MICROGRAM, B.I.WK.
     Route: 067
  7. CALCICHEW D3 LEMON [Concomitant]
     Dosage: 500MG/20?G TABLET, TID
     Route: 048
  8. AVAMYS [Concomitant]
     Active Substance: FLUTICASONE FUROATE
     Dosage: 1 SPRAY IN BOTH NOSTRILS, PRN
     Route: 045
  9. KETIPINOR [Concomitant]
     Active Substance: QUETIAPINE FUMARATE
     Dosage: 75 MILLIGRAM, QD
     Route: 048
  10. GAMUNEX [Suspect]
     Active Substance: HUMAN IMMUNOGLOBULIN G
     Indication: FOLLICULAR LYMPHOMA
     Dosage: 20 GRAM, Q.3WK.
     Route: 042
     Dates: start: 2016
  11. CANDESARTAN ORION [Concomitant]
     Active Substance: CANDESARTAN
     Dosage: 8 MILLIGRAM, QD
     Route: 048

REACTIONS (1)
  - Hepatitis B core antibody positive [Unknown]

NARRATIVE: CASE EVENT DATE: 20210618
